FAERS Safety Report 4942696-1 (Version None)
Quarter: 2006Q1

REPORT INFORMATION
  Report Type: 
  Country: None (occurrence: None)
  Receive Date: 20060309
  Receipt Date: 20060227
  Transmission Date: 20060701
  Serious: Yes (Hospitalization)
  Sender: FDA-Public Use
  Company Number: GXKR2006GB00852

PATIENT
  Age: 51 Year
  Sex: Female

DRUGS (19)
  1. RANITIDINE [Suspect]
  2. CIPROFLOXACIN [Suspect]
  3. ZAPONEX (CLONZAPINE) [Suspect]
     Dosage: ORAL
     Route: 048
     Dates: start: 20050526
  4. LEVOTHYROXINE SODIUM [Suspect]
  5. VALPROATE SODIUM [Suspect]
  6. HYDROCORTISONE [Suspect]
  7. FLUCONAZOLE [Suspect]
  8. FENTANYL [Suspect]
  9. ACETAMINOPHEN [Suspect]
  10. AMISULPRIDE (AMISULPRIDE) [Concomitant]
  11. LITHIUM (LITHIUM) [Concomitant]
  12. LACTULOSE [Concomitant]
  13. ENOXAPARIN (ENOXAPARIN, HEPARIN-FRACTION) [Concomitant]
  14. PROPOFOL [Concomitant]
  15. MIDAZOLAM HCL [Concomitant]
  16. NORADRENALINE (NOREPINEPHRINE) [Concomitant]
  17. POTASSIUM (POTASSIUM) [Concomitant]
  18. INSULIN (INSULIN) [Concomitant]
  19. HEPARIN [Concomitant]

REACTIONS (1)
  - LOSS OF CONSCIOUSNESS [None]
